FAERS Safety Report 9934260 (Version 2)
Quarter: 2014Q1

REPORT INFORMATION
  Report Type: Report from Study
  Country: US (occurrence: US)
  Receive Date: 20140228
  Receipt Date: 20140228
  Transmission Date: 20141002
  Serious: No
  Sender: FDA-Public Use
  Company Number: US-ABBVIE-13P-163-1179780-00

PATIENT
  Age: 63 Year
  Sex: Male

DRUGS (6)
  1. ANDROGEL [Suspect]
     Indication: TESTICULAR FAILURE
     Dosage: 4 PUMPS
     Route: 061
     Dates: start: 201301, end: 201311
  2. ANDROGEL [Suspect]
     Dosage: 6 PUMPS
     Route: 061
     Dates: start: 201311
  3. LOVASTATIN [Concomitant]
     Indication: PRODUCT USED FOR UNKNOWN INDICATION
  4. PRILOSEC [Concomitant]
     Indication: PRODUCT USED FOR UNKNOWN INDICATION
  5. VALIUM [Concomitant]
     Indication: PRODUCT USED FOR UNKNOWN INDICATION
  6. VIAGRA [Concomitant]
     Indication: PRODUCT USED FOR UNKNOWN INDICATION

REACTIONS (1)
  - Blood testosterone decreased [Not Recovered/Not Resolved]
